FAERS Safety Report 6640304-5 (Version None)
Quarter: 2010Q1

REPORT INFORMATION
  Report Type: 
  Country: None (occurrence: None)
  Receive Date: 20100318
  Receipt Date: 20100310
  Transmission Date: 20100710
  Serious: Yes (Hospitalization)
  Sender: FDA-Public Use
  Company Number: NL-ROCHE-690452

PATIENT
  Sex: Female
  Weight: 78 kg

DRUGS (7)
  1. TOCILIZUMAB [Suspect]
     Indication: RHEUMATOID ARTHRITIS
     Route: 042
     Dates: start: 20100217
  2. NEXIUM [Concomitant]
     Dates: start: 20061104
  3. NAPROXEN [Concomitant]
     Dates: start: 20061104
  4. CALCIUM/VITAMIN D3 [Concomitant]
     Dosage: DRUG: CALCI CHEW /D3
     Dates: start: 20061104
  5. PREDNISONE [Concomitant]
     Dosage: DRUG:PREDNISON
     Dates: start: 20060224
  6. FOSAMAX [Concomitant]
     Dates: start: 20060224
  7. FERROFUMARAAT [Concomitant]
     Dates: start: 20090622, end: 20090722

REACTIONS (1)
  - EPILEPSY [None]
